FAERS Safety Report 14349614 (Version 1)
Quarter: 2018Q1

REPORT INFORMATION
  Report Type: Spontaneous
  Country: CH (occurrence: CH)
  Receive Date: 20180104
  Receipt Date: 20180104
  Transmission Date: 20180509
  Serious: Yes (Hospitalization)
  Sender: FDA-Public Use
  Company Number: CH-BAYER-2017-242774

PATIENT
  Age: 53 Year
  Sex: Male

DRUGS (17)
  1. VITAMIN D3 [Concomitant]
     Active Substance: CHOLECALCIFEROL
     Dosage: 3 ML, OW
  2. ACIDUM FOLICUM HAENSELER [Concomitant]
     Dosage: 5 MG, OM, LONG-TERM THERAPY
  3. MAGNESIOCARD ORANGE [Concomitant]
     Dosage: 1 DF, UNK
  4. NICOTINELL [Concomitant]
     Active Substance: NICOTINE
     Dosage: 1 DF, QD
     Route: 062
  5. ATORVASTATIN CALCIUM. [Concomitant]
     Active Substance: ATORVASTATIN CALCIUM
     Dosage: 40 MG, QD, LONG-TERM THERAPY
  6. MIRTAZAPINE. [Concomitant]
     Active Substance: MIRTAZAPINE
     Dosage: 30 MG, QD, LONG-TERM THERAPY
  7. LAMOTRIGINE. [Concomitant]
     Active Substance: LAMOTRIGINE
     Dosage: 100 MG, BID, LONG-TERM THERAPY
  8. QUETIAPINE FUMARATE. [Concomitant]
     Active Substance: QUETIAPINE FUMARATE
     Dosage: 25 MG, HS AND 1 IN RESERVE
     Dates: start: 201710
  9. TRIATEC [Concomitant]
     Active Substance: RAMIPRIL
     Dosage: 5 MG, OM, LONG-TERM THERAPY
  10. TRAMADOL HELVEPHARM [Concomitant]
     Dosage: 100 MG, UNK
  11. SERESTA [Concomitant]
     Active Substance: OXAZEPAM
     Dosage: 15 MG, TID, PAUSED FROM 20 TO 27-NOV-2017
     Dates: start: 201710
  12. MOTILIUM [Concomitant]
     Active Substance: DOMPERIDONE
     Indication: NAUSEA
     Dosage: 10 MG, TID
     Route: 060
  13. NOVALGIN (METAMIZOLE SODIUM) [Interacting]
     Active Substance: METAMIZOLE SODIUM
     Indication: POST-TRAUMATIC PAIN
     Dosage: 40 GTT, QID
     Route: 048
     Dates: start: 20170927, end: 20171120
  14. ASPIRIN CARDIO 100 MG [Suspect]
     Active Substance: ASPIRIN
     Indication: CEREBROVASCULAR ACCIDENT PROPHYLAXIS
     Dosage: 100 MG, OM
     Route: 048
     Dates: start: 201710, end: 20171116
  15. PANTOPRAZOLE SODIUM. [Concomitant]
     Active Substance: PANTOPRAZOLE SODIUM
     Dosage: 40 MG, OM, LONG-TERM THERAPY (PAUSED FROM 20 TO 24-NOV-2017)
  16. IBUPROFEN SANDOZ [Interacting]
     Active Substance: IBUPROFEN
     Indication: POST-TRAUMATIC PAIN
     Dosage: 600 MG, QID
     Route: 048
     Dates: start: 20170927, end: 20171116
  17. BECOZYME C [VIT C,VIT H,B5,B12,B3,PYRIDOX,B2,B1] [Concomitant]
     Dosage: 1 DF, OM, LONG-TERM THERAPY

REACTIONS (2)
  - Glomerulonephritis membranous [Recovering/Resolving]
  - Potentiating drug interaction [Recovering/Resolving]

NARRATIVE: CASE EVENT DATE: 20171113
